FAERS Safety Report 16205958 (Version 1)
Quarter: 2019Q2

REPORT INFORMATION
  Report Type: Spontaneous
  Country: US (occurrence: US)
  Receive Date: 20190312
  Receipt Date: 20190312
  Transmission Date: 20190711
  Serious: Yes (Other)
  Sender: FDA-Public Use
  Company Number: None

PATIENT
  Age: 60 Year
  Sex: Female
  Weight: 99.79 kg

DRUGS (5)
  1. ROSUVASTATIN. [Concomitant]
     Active Substance: ROSUVASTATIN
  2. SIMVASTATIN. [Concomitant]
     Active Substance: SIMVASTATIN
  3. KEFLEX [Suspect]
     Active Substance: CEPHALEXIN
     Indication: SUTURE INSERTION
     Dates: start: 20190221
  4. MULTIVITAMIN [Concomitant]
     Active Substance: VITAMINS
  5. PANTOPRAZOLE [Concomitant]
     Active Substance: PANTOPRAZOLE

REACTIONS (7)
  - Chills [None]
  - Abdominal discomfort [None]
  - Fatigue [None]
  - Pyrexia [None]
  - Diarrhoea [None]
  - Asthenia [None]
  - Oropharyngeal pain [None]

NARRATIVE: CASE EVENT DATE: 20190221
